FAERS Safety Report 9064730 (Version 7)
Quarter: 2013Q2

REPORT INFORMATION
  Report Type: Spontaneous
  Country: GB (occurrence: GB)
  Receive Date: 20130213
  Receipt Date: 20130626
  Transmission Date: 20140414
  Serious: Yes (Death, Hospitalization, Other)
  Sender: FDA-Public Use
  Company Number: PHFR2013GB000853

PATIENT
  Age: 49 Year
  Sex: Male

DRUGS (2)
  1. CLOZARIL [Suspect]
     Indication: SCHIZOPHRENIA
     Dosage: UNK
     Route: 048
     Dates: start: 20010701
  2. CLOZARIL [Suspect]
     Indication: OFF LABEL USE
     Dosage: UNK
     Route: 048
     Dates: start: 20130305

REACTIONS (9)
  - Neoplasm malignant [Fatal]
  - Schizophrenia [Unknown]
  - Psychotic disorder [Unknown]
  - Mental impairment [Recovering/Resolving]
  - Lung cancer metastatic [Unknown]
  - Dyspnoea [Unknown]
  - Platelet count decreased [Recovered/Resolved]
  - White blood cell count decreased [Recovered/Resolved]
  - Neutropenia [Recovered/Resolved]
